FAERS Safety Report 4717103-4 (Version None)
Quarter: 2005Q3

REPORT INFORMATION
  Report Type: 
  Country: None (occurrence: None)
  Receive Date: 20050715
  Receipt Date: 20050624
  Transmission Date: 20060218
  Serious: Yes (Hospitalization)
  Sender: FDA-Public Use
  Company Number: 26953

PATIENT
  Age: 19 Year
  Sex: Male

DRUGS (1)
  1. FLECAINIDE ACETATE [Suspect]

REACTIONS (3)
  - ELECTROCARDIOGRAM QRS COMPLEX PROLONGED [None]
  - OVERDOSE [None]
  - SUICIDE ATTEMPT [None]
